FAERS Safety Report 20163914 (Version 1)
Quarter: 2021Q4

REPORT INFORMATION
  Report Type: Report from Study
  Country: BR (occurrence: BR)
  Receive Date: 20211209
  Receipt Date: 20211209
  Transmission Date: 20220303
  Serious: Yes (Other)
  Sender: FDA-Public Use
  Company Number: BR-NOVARTISPH-NVSC2021BR263973

PATIENT
  Age: 69 Year
  Sex: Female
  Weight: 75 kg

DRUGS (7)
  1. LETROZOLE [Suspect]
     Active Substance: LETROZOLE
     Indication: Invasive ductal breast carcinoma
     Dosage: UNK
     Route: 065
     Dates: start: 202103
  2. LETROZOLE [Suspect]
     Active Substance: LETROZOLE
     Indication: Palliative care
     Dosage: 1 DOSAGE FORM, QD
     Route: 048
     Dates: start: 20210518
  3. RIBOCICLIB [Suspect]
     Active Substance: RIBOCICLIB
     Indication: Invasive ductal breast carcinoma
     Dosage: UNK
     Route: 065
     Dates: start: 202103
  4. RIBOCICLIB [Suspect]
     Active Substance: RIBOCICLIB
     Dosage: 2 DOSAGE FORM, QD
     Route: 048
     Dates: start: 20210601
  5. TAMOXIFEN [Suspect]
     Active Substance: TAMOXIFEN
     Indication: Invasive ductal breast carcinoma
     Dosage: UNK
     Route: 065
     Dates: start: 201602
  6. TAMOXIFEN [Suspect]
     Active Substance: TAMOXIFEN
     Indication: Adjuvant therapy
     Dosage: 1 DOSAGE FORM, QD
     Route: 048
     Dates: start: 20160611, end: 20210517
  7. LOSARTAN [Suspect]
     Active Substance: LOSARTAN
     Indication: Product used for unknown indication
     Dosage: UNK
     Route: 065

REACTIONS (21)
  - Metastases to bone [Recovering/Resolving]
  - Metastases to lymph nodes [Unknown]
  - Breast cancer metastatic [Recovering/Resolving]
  - Hormone receptor positive breast cancer [Unknown]
  - Bone lesion [Recovered/Resolved]
  - Lymphoedema [Recovered/Resolved]
  - Pain in extremity [Recovered/Resolved]
  - Adenomyosis [Unknown]
  - COVID-19 [Unknown]
  - Asthenia [Recovered/Resolved]
  - Decreased appetite [Recovered/Resolved]
  - Viral infection [Recovered/Resolved]
  - Arthralgia [Recovered/Resolved]
  - Gait disturbance [Recovered/Resolved]
  - Lymphoedema [Unknown]
  - Pain in extremity [Unknown]
  - COVID-19 [Recovered/Resolved]
  - Lymphadenopathy [Recovered/Resolved]
  - Nausea [Unknown]
  - Myalgia [Recovered/Resolved]
  - Fatigue [Recovered/Resolved]

NARRATIVE: CASE EVENT DATE: 20201219
